FAERS Safety Report 20332246 (Version 1)
Quarter: 2022Q1

REPORT INFORMATION
  Report Type: Spontaneous
  Country: US (occurrence: None)
  Receive Date: 20220113
  Receipt Date: 20220113
  Transmission Date: 20220424
  Serious: Yes (Other)
  Sender: FDA-Public Use
  Company Number: None

PATIENT
  Age: 47 Year
  Sex: Female
  Weight: 53.1 kg

DRUGS (4)
  1. DEXTROAMPHET SACCHARAT, AMPHET ASPARTATE, DEXTROAMPHET SULFATE AND AMP [Suspect]
     Active Substance: AMPHETAMINE ASPARTATE\AMPHETAMINE SULFATE\DEXTROAMPHETAMINE SACCHARATE\DEXTROAMPHETAMINE SULFATE
     Indication: Attention deficit hyperactivity disorder
     Dosage: OTHER QUANTITY : 1 TABLET(S);?FREQUENCY : TWICE A DAY;?
     Route: 048
     Dates: start: 20210713, end: 20210913
  2. LORAZEPAM [Concomitant]
     Active Substance: LORAZEPAM
  3. ZOMIG [Concomitant]
     Active Substance: ZOLMITRIPTAN
  4. VITAMINS [Concomitant]
     Active Substance: VITAMINS

REACTIONS (7)
  - Abdominal pain upper [None]
  - Nausea [None]
  - Vomiting [None]
  - Pain [None]
  - Headache [None]
  - Influenza like illness [None]
  - Gastrointestinal disorder [None]

NARRATIVE: CASE EVENT DATE: 20210713
